FAERS Safety Report 7737271-X (Version None)
Quarter: 2011Q3

REPORT INFORMATION
  Report Type: 
  Country: None (occurrence: None)
  Receive Date: 20110908
  Receipt Date: 20110830
  Transmission Date: 20111222
  Serious: Yes (Death, Other)
  Sender: FDA-Public Use
  Company Number: JP-ALLERGAN-1107346US

PATIENT
  Age: 7 Year
  Sex: Female

DRUGS (8)
  1. BOTOX [Suspect]
     Indication: TORTICOLLIS
     Dosage: 15 UNITS, SINGLE
     Route: 030
     Dates: start: 20110512, end: 20110512
  2. DEPAKENE [Concomitant]
     Indication: EPILEPSY
     Dosage: 175 MG, BID
     Route: 048
     Dates: end: 20110517
  3. BIO THREE [Concomitant]
     Dosage: 0.3 G, TID
     Route: 048
     Dates: end: 20110517
  4. BOTOX [Suspect]
     Dosage: 10 UNK, UNK
     Route: 030
     Dates: start: 20110113, end: 20110113
  5. DANTRIUM [Concomitant]
     Indication: MUSCLE TIGHTNESS
     Dosage: 25 MG, BID
     Route: 048
     Dates: end: 20110517
  6. DIAZEPAM [Concomitant]
     Indication: MUSCLE TIGHTNESS
     Dosage: 1.5 MG, BID
     Route: 048
     Dates: end: 20110517
  7. TIZANIDINE HCL [Concomitant]
     Indication: MUSCLE TIGHTNESS
     Dosage: 0.375 G, BID
     Route: 048
     Dates: end: 20110517
  8. ROZEREM [Concomitant]
     Indication: INSOMNIA
     Dosage: 4 MG, TID
     Route: 048
     Dates: end: 20110517

REACTIONS (2)
  - CARDIO-RESPIRATORY ARREST [None]
  - PNEUMONIA [None]
